FAERS Safety Report 7762863-1 (Version None)
Quarter: 2011Q3

REPORT INFORMATION
  Report Type: 
  Country: None (occurrence: None)
  Receive Date: 20110920
  Receipt Date: 20110907
  Transmission Date: 20111222
  Serious: Yes (Hospitalization)
  Sender: FDA-Public Use
  Company Number: CN-KINGPHARMUSA00001-K201101045

PATIENT
  Age: 44 Year
  Sex: Female

DRUGS (1)
  1. TAPAZOLE [Suspect]
     Indication: BASEDOW'S DISEASE
     Dosage: 30 MG, QD

REACTIONS (6)
  - IMPAIRED HEALING [None]
  - PSEUDOMONAS INFECTION [None]
  - PYREXIA [None]
  - WOUND NECROSIS [None]
  - HISTIOCYTOSIS HAEMATOPHAGIC [None]
  - AGRANULOCYTOSIS [None]
